FAERS Safety Report 5576477-5 (Version None)
Quarter: 2007Q4

REPORT INFORMATION
  Report Type: 
  Country: None (occurrence: None)
  Receive Date: 20071228
  Receipt Date: 20071221
  Transmission Date: 20080405
  Serious: Yes (Hospitalization)
  Sender: FDA-Public Use
  Company Number: FR-ABBOTT-07P-056-0431298-00

PATIENT
  Age: 83 Year
  Sex: Female

DRUGS (4)
  1. DEPAKENE [Suspect]
     Indication: EPILEPSY
     Route: 048
     Dates: start: 20071005, end: 20071016
  2. PHENOBARBITAL TAB [Suspect]
     Indication: EPILEPSY
     Route: 048
     Dates: start: 20070929
  3. TRAMADOL HCL [Suspect]
     Indication: EPILEPSY
     Route: 048
     Dates: start: 20071001, end: 20071011
  4. AMOXICILLIN [Concomitant]
     Indication: DRUG USE FOR UNKNOWN INDICATION
     Route: 048
     Dates: start: 20071005, end: 20071010

REACTIONS (3)
  - COMA [None]
  - DISTURBANCE IN ATTENTION [None]
  - HYPOTONIA [None]
